FAERS Safety Report 5387481-4 (Version None)
Quarter: 2007Q3

REPORT INFORMATION
  Report Type: 
  Country: None (occurrence: None)
  Receive Date: 20070716
  Receipt Date: 20070706
  Transmission Date: 20080115
  Serious: Yes (Hospitalization)
  Sender: FDA-Public Use
  Company Number: DE-AVENTIS-200711699DE

PATIENT
  Age: 71 Year
  Sex: Female
  Weight: 68 kg

DRUGS (3)
  1. TAXOTERE [Suspect]
     Route: 041
     Dates: start: 20070525, end: 20070525
  2. SPIRONOLACTONE [Concomitant]
     Route: 048
     Dates: start: 20070522, end: 20070605
  3. SPIRONOLACTONE [Concomitant]
     Route: 048
     Dates: start: 20070522, end: 20070605

REACTIONS (8)
  - ASTHENIA [None]
  - BONE PAIN [None]
  - DIABETES MELLITUS [None]
  - FATIGUE [None]
  - HYPOTENSION [None]
  - SYNCOPE [None]
  - TRANSAMINASES INCREASED [None]
  - WEIGHT DECREASED [None]
